FAERS Safety Report 11971965 (Version 1)
Quarter: 2016Q1

REPORT INFORMATION
  Report Type: Spontaneous
  Country: US (occurrence: US)
  Receive Date: 20160128
  Receipt Date: 20160128
  Transmission Date: 20160526
  Serious: No
  Sender: FDA-Public Use
  Company Number: US-PFIZER INC-2015477644

PATIENT
  Sex: Male
  Weight: 84.37 kg

DRUGS (1)
  1. LIPITOR [Suspect]
     Active Substance: ATORVASTATIN CALCIUM
     Indication: BLOOD CHOLESTEROL INCREASED
     Dosage: 10 MG, 1X/DAY IN THE EVENING
     Route: 048

REACTIONS (3)
  - Gout [Recovered/Resolved]
  - Condition aggravated [Recovered/Resolved]
  - Weight decreased [Unknown]
